FAERS Safety Report 4940570-8 (Version None)
Quarter: 2006Q1

REPORT INFORMATION
  Report Type: 
  Country: None (occurrence: None)
  Receive Date: 20060201
  Receipt Date: 20051020
  Transmission Date: 20060701
  Serious: No
  Sender: FDA-Public Use
  Company Number: 2005PV003636

PATIENT
  Age: 60 Year
  Sex: Male
  Weight: 111.1313 kg

DRUGS (4)
  1. BYETTA [Suspect]
     Indication: DIABETES MELLITUS NON-INSULIN-DEPENDENT
     Dosage: 5 MCG;BID;SC
     Route: 058
     Dates: start: 20051019, end: 20051021
  2. METFORMIN [Suspect]
     Indication: DIABETES MELLITUS NON-INSULIN-DEPENDENT
     Dosage: 500 MG;QID;PO
     Route: 048
     Dates: start: 20030101
  3. GLYBURIDE [Concomitant]
  4. INSULIN [Concomitant]

REACTIONS (2)
  - FOOD CRAVING [None]
  - NAUSEA [None]
